FAERS Safety Report 8916048 (Version 2)
Quarter: 2012Q4

REPORT INFORMATION
  Report Type: 
  Country: JP (occurrence: JP)
  Receive Date: 20121119
  Receipt Date: 20121127
  Transmission Date: 20130627
  Serious: Yes (Other)
  Sender: FDA-Public Use
  Company Number: PHHY2012JP104862

PATIENT
  Sex: Male

DRUGS (3)
  1. NEORAL [Suspect]
     Indication: UVEITIS
     Dosage: 200 mg, daily
     Route: 048
  2. NEORAL [Suspect]
     Indication: BEHCET^S SYNDROME
  3. NEORAL [Suspect]
     Indication: COLLAGEN DISORDER

REACTIONS (2)
  - Ileus [Unknown]
  - Dysphagia [Unknown]
